FAERS Safety Report 19028095 (Version 1)
Quarter: 2021Q1

REPORT INFORMATION
  Report Type: Report from Study
  Country: CA (occurrence: CA)
  Receive Date: 20210318
  Receipt Date: 20210318
  Transmission Date: 20210420
  Serious: Yes (Hospitalization, Other)
  Sender: FDA-Public Use
  Company Number: CA-BAUSCH-BL-2021-008299

PATIENT
  Sex: Female

DRUGS (6)
  1. SALBUTAMOL SULFATE [Suspect]
     Active Substance: ALBUTEROL SULFATE
     Indication: PRODUCT USED FOR UNKNOWN INDICATION
     Route: 065
  2. FORMOTEROL FUMARATE/MOMETASONE FUROATE [Suspect]
     Active Substance: FORMOTEROL FUMARATE\MOMETASONE FUROATE
     Indication: PRODUCT USED FOR UNKNOWN INDICATION
     Dosage: INHALATION
     Route: 065
  3. SINGULAIR [Suspect]
     Active Substance: MONTELUKAST SODIUM
     Indication: PRODUCT USED FOR UNKNOWN INDICATION
     Route: 048
  4. SALBUTAMOL SULFATE [Suspect]
     Active Substance: ALBUTEROL SULFATE
     Dosage: INHALATION
     Route: 065
  5. TIOTROPIUM BROMIDE [Suspect]
     Active Substance: TIOTROPIUM BROMIDE
     Indication: PRODUCT USED FOR UNKNOWN INDICATION
     Dosage: INHALATION
     Route: 065
  6. ALVESCO [Suspect]
     Active Substance: CICLESONIDE
     Indication: ASTHMA
     Dosage: AEROSOL, METERED DOSE, INHALATION
     Route: 065

REACTIONS (9)
  - Loss of personal independence in daily activities [Not Recovered/Not Resolved]
  - Pneumonia [Not Recovered/Not Resolved]
  - Sleep disorder due to a general medical condition [Not Recovered/Not Resolved]
  - Dyspnoea [Not Recovered/Not Resolved]
  - Ileostomy [Not Recovered/Not Resolved]
  - Asthma [Not Recovered/Not Resolved]
  - Multiple sclerosis [Not Recovered/Not Resolved]
  - Atelectasis [Not Recovered/Not Resolved]
  - Wheezing [Not Recovered/Not Resolved]
